FAERS Safety Report 8290279-0 (Version None)
Quarter: 2012Q2

REPORT INFORMATION
  Report Type: 
  Country: None (occurrence: None)
  Receive Date: 20120417
  Receipt Date: 20120403
  Transmission Date: 20120825
  Serious: Yes (Hospitalization)
  Sender: FDA-Public Use
  Company Number: DK-ASTELLAS-2012EU002575

PATIENT
  Sex: Female
  Weight: 97 kg

DRUGS (1)
  1. VESICARE [Suspect]
     Indication: URINARY INCONTINENCE
     Dosage: STYRKE: 10 MG
     Route: 048
     Dates: start: 20120101, end: 20120316

REACTIONS (5)
  - NAUSEA [None]
  - NERVOUS SYSTEM DISORDER [None]
  - GENERAL SYMPTOM [None]
  - FATIGUE [None]
  - TOXICITY TO VARIOUS AGENTS [None]
